FAERS Safety Report 8342688 (Version 3)
Quarter: 2013Q4

REPORT INFORMATION
  Report Type: Report from Study
  Country: TR (occurrence: TR)
  Receive Date: 20120118
  Receipt Date: 20131120
  Transmission Date: 20140711
  Serious: Yes (Hospitalization)
  Sender: FDA-Public Use
  Company Number: TR-TEVA-2011005448

PATIENT
  Age: 55 Year
  Sex: Male
  Weight: 70 kg

DRUGS (2)
  1. BENDAMUSTINE HCL [Suspect]
     Indication: CHRONIC LYMPHOCYTIC LEUKAEMIA
     Route: 042
     Dates: start: 20110615
  2. RITUXIMAB [Suspect]
     Route: 042
     Dates: start: 20110615

REACTIONS (2)
  - Vestibular disorder [Not Recovered/Not Resolved]
  - Adjustment disorder [Recovered/Resolved]
